FAERS Safety Report 17444979 (Version 5)
Quarter: 2020Q1

REPORT INFORMATION
  Report Type: Spontaneous
  Country: CH (occurrence: CH)
  Receive Date: 20200221
  Receipt Date: 20200313
  Transmission Date: 20200409
  Serious: Yes (Hospitalization, Other)
  Sender: FDA-Public Use
  Company Number: CH-PFIZER INC-2020071205

PATIENT
  Age: 94 Year
  Sex: Female

DRUGS (45)
  1. NEXIUM CONTROL [Suspect]
     Active Substance: ESOMEPRAZOLE MAGNESIUM
     Dosage: UNK (1 IN THE MORNING)
     Dates: end: 20180703
  2. CALCIMAGON D3 [Suspect]
     Active Substance: CALCIUM\CHOLECALCIFEROL
     Dosage: 1 DF, 1X/DAY 500/800 TABLETS 1-0-0-0
  3. VALSARTAN SANDOZ [Suspect]
     Active Substance: VALSARTAN
     Dosage: UNK (1/5-0-1/5-0)
     Dates: start: 20181010
  4. ESIDREX [Suspect]
     Active Substance: HYDROCHLOROTHIAZIDE
     Dosage: UNK
  5. PREDNISONE. [Suspect]
     Active Substance: PREDNISONE
     Dosage: UNK
     Dates: start: 20180724, end: 20180805
  6. PARAGOL N [Suspect]
     Active Substance: MINERAL OIL
     Dosage: UNK
  7. ALDACTONE [Suspect]
     Active Substance: SPIRONOLACTONE
     Dosage: UNK
     Dates: start: 20180806, end: 20180910
  8. SIMVASTATIN MEPHA [Suspect]
     Active Substance: SIMVASTATIN
     Dosage: 40 MG, 1X/DAY0-0-1-0
     Dates: end: 20180703
  9. VALSARTAN SANDOZ [Suspect]
     Active Substance: VALSARTAN
     Dosage: UNK (1/2 IN THE MORNING AND 1/2 IN THE EVENING)
     Dates: end: 20180703
  10. XARELTO [Suspect]
     Active Substance: RIVAROXABAN
     Dosage: 20 MG, ONCE A DAY
     Dates: start: 20180820
  11. NITROGLYCERIN STREULI [Suspect]
     Active Substance: NITROGLYCERIN
     Dosage: UNK UNK, AS NEEDED
  12. CORVATON [Suspect]
     Active Substance: MOLSIDOMINE
     Dosage: UNK (1/5-0-1-0)
  13. TORASEMIDE [Suspect]
     Active Substance: TORSEMIDE
     Dosage: BETWEEN 1/5 OR 1 OR 1.5 TABLETS EACH MORNING
  14. XELJANZ [Suspect]
     Active Substance: TOFACITINIB CITRATE
     Dosage: 5 MG, 2X/DAY 1-0-1-0
     Dates: end: 201807
  15. ELIQUIS [Suspect]
     Active Substance: APIXABAN
     Dosage: UNK UNK, 2X/DAY (1-0-1-0)
     Dates: start: 20180905, end: 20181010
  16. METO ZEROK [Suspect]
     Active Substance: METOPROLOL SUCCINATE
     Dosage: 12.5 MG, UNK
  17. DAFALGAN [Suspect]
     Active Substance: ACETAMINOPHEN
     Dosage: 1 G, 4X/DAY
     Dates: end: 20180703
  18. FRESUBIN 2 KCAL [CARBOHYDRATES\FATTY ACIDS\MINERALS\PROTEIN\VITAMINS] [Suspect]
     Active Substance: CARBOHYDRATES\FATTY ACIDS\MINERALS\PROTEIN\VITAMINS
     Dosage: 125 G CREAM 1 AT 15:00/21:00 CHOCOLATE
     Dates: end: 20180703
  19. GUTRON [Suspect]
     Active Substance: MIDODRINE
     Dosage: UNK UNK, 3X/DAY (1-1-1-0)
  20. FLECTOR EP [Suspect]
     Active Substance: DICLOFENAC EPOLAMINE
     Dosage: UNK
     Dates: start: 20180816, end: 20180824
  21. MAGNESIOCARD [Suspect]
     Active Substance: MAGNESIUM ASPARTATE HYDROCHLORIDE
     Dosage: UNK UNK, 1X/DAY (0-0-1-0)
  22. KCL-RETARD [Suspect]
     Active Substance: POTASSIUM CHLORIDE
     Dosage: 40 MMOL, DAILY (10 MMOL DRAGEES 0-2-2-0)
  23. DIOVAN [Suspect]
     Active Substance: VALSARTAN
     Dosage: UNK (1/5-0-0-0)
  24. DAFALGAN [Suspect]
     Active Substance: ACETAMINOPHEN
     Dosage: 500 MG, AS NEEDED
  25. DIGOXIN SANDOZ [Suspect]
     Active Substance: DIGOXIN
     Dosage: UNK (1 AT NOON, SUNDAY BREAK)
     Dates: end: 20180703
  26. LAXOBERON [Suspect]
     Active Substance: SODIUM PICOSULFATE
     Dosage: UNK
  27. LIXIANA [Suspect]
     Active Substance: EDOXABAN TOSYLATE
     Dosage: UNK UNK, 1X/DAY (0-0-1-0)
  28. PANTOZOL [Suspect]
     Active Substance: PANTOPRAZOLE SODIUM
     Dosage: 40 MG, 1X/DAY 1-0-0-0
  29. DIOVAN [Suspect]
     Active Substance: VALSARTAN
     Dosage: 80 MG, DAILY 1/2-0-1/2-0
     Dates: end: 20180703
  30. CALPEROS [CALCIUM CARBONATE] [Suspect]
     Active Substance: CALCIUM CARBONATE
     Dosage: UNK (1 IN THE MORNING)
     Dates: end: 20180703
  31. SYMBICORT [Suspect]
     Active Substance: BUDESONIDE\FORMOTEROL FUMARATE DIHYDRATE
     Dosage: UNK UNK, AS NEEDED
  32. MAGNESIOCARD [Suspect]
     Active Substance: MAGNESIUM ASPARTATE HYDROCHLORIDE
     Dosage: UNK, 1X/DAY (0-0-2-0)
  33. ALDACTONE [Suspect]
     Active Substance: SPIRONOLACTONE
     Dosage: 12.5 MG, 1X/DAY 1/2-0-0-0
     Dates: end: 20180807
  34. ALDACTONE [Suspect]
     Active Substance: SPIRONOLACTONE
     Dosage: UNK (0-0-1/5-0)
  35. FRAGMIN [Suspect]
     Active Substance: DALTEPARIN SODIUM
     Dosage: 5000 IU, 1X/DAY 0-0-1-0 FOR AT LEAST 6 WEEKS
  36. MARCUMAR [Suspect]
     Active Substance: PHENPROCOUMON
     Dosage: UNK (MOSTLY 1/4 IN THE MORNING)
     Dates: end: 20180701
  37. RESOURCE 2.0+FIBRE [DIETARY SUPPLEMENT] [Suspect]
     Active Substance: DIETARY SUPPLEMENT
     Dosage: UNK UNK, 1X/DAY (1-0-0-0)
     Dates: start: 20180827, end: 20181010
  38. PROLIA [Suspect]
     Active Substance: DENOSUMAB
     Dosage: 60 MG/ML, UNK
     Dates: end: 201811
  39. PIPERACILLIN/TAZOBACTAM [Suspect]
     Active Substance: PIPERACILLIN SODIUM\TAZOBACTAM SODIUM
     Dosage: 4.5 G, 3X/DAY (EVERY 8 HOURS)
     Route: 042
     Dates: end: 20180719
  40. BELOC ZOK [Suspect]
     Active Substance: METOPROLOL SUCCINATE
     Dosage: 25 MG, 2X/DAY 1-0-0-1
  41. FLECTOPARIN [Suspect]
     Active Substance: DICLOFENAC EPOLAMINE\HEPARIN SODIUM
     Dosage: UNK UNK, AS NEEDED
  42. METO ZEROK [Suspect]
     Active Substance: METOPROLOL SUCCINATE
     Dosage: UNK, 2X/DAY (1-0-0-1)
  43. METOLAZON [Suspect]
     Active Substance: METOLAZONE
     Dosage: 2.5 MG, 1X/DAY 1/2-0-0-0
     Dates: end: 20180710
  44. XARELTO [Suspect]
     Active Substance: RIVAROXABAN
     Dosage: UNK
     Dates: end: 20180820
  45. AUGMENTIN [Suspect]
     Active Substance: AMOXICILLIN\CLAVULANATE POTASSIUM
     Indication: PNEUMONIA
     Dosage: UNK
     Dates: start: 20180725, end: 20180730

REACTIONS (23)
  - Alopecia [Unknown]
  - Nightmare [Recovered/Resolved]
  - Pain in extremity [Unknown]
  - Overdose [Recovered/Resolved]
  - Amnesia [Unknown]
  - Fatigue [Unknown]
  - Muscular weakness [Recovered/Resolved]
  - Elephantiasis [Unknown]
  - Pyrexia [Unknown]
  - Dementia [Unknown]
  - Dyspnoea [Unknown]
  - Hallucination [Unknown]
  - Visual impairment [Recovered/Resolved]
  - Weight decreased [Unknown]
  - Dehydration [Recovered/Resolved]
  - Dry mouth [Recovered/Resolved]
  - Thirst [Recovered/Resolved]
  - Joint swelling [Unknown]
  - Diarrhoea [Unknown]
  - Depression [Unknown]
  - Delirium [Recovered/Resolved]
  - Hyperhidrosis [Recovered/Resolved]
  - Fluid retention [Unknown]

NARRATIVE: CASE EVENT DATE: 20180705
